FAERS Safety Report 7058222-X (Version None)
Quarter: 2010Q4

REPORT INFORMATION
  Report Type: 
  Country: None (occurrence: None)
  Receive Date: 20101022
  Receipt Date: 20101018
  Transmission Date: 20110411
  Serious: Yes (Death, Life-Threatening)
  Sender: FDA-Public Use
  Company Number: FR-WYE-G06818410

PATIENT
  Sex: Female

DRUGS (5)
  1. EFFEXOR XR [Suspect]
     Indication: DEPRESSION
     Route: 048
     Dates: start: 20081201, end: 20100323
  2. NITRODERM [Suspect]
     Dosage: 5 MG/24 HOUR 1 TIME DAILY
     Route: 062
     Dates: start: 20100322
  3. XANAX [Concomitant]
     Indication: ANXIETY
     Dosage: 0.25 MG STRENGTH; DOSE UNKNOWN (PUNCTUALLY)
     Route: 048
     Dates: start: 20091012
  4. MEMANTINE HCL [Suspect]
     Indication: DEMENTIA ALZHEIMER'S TYPE
     Route: 048
     Dates: start: 20081201, end: 20100323
  5. ARICEPT [Suspect]
     Indication: DEMENTIA ALZHEIMER'S TYPE
     Route: 048
     Dates: start: 20081201, end: 20100323

REACTIONS (4)
  - ARRHYTHMIA [None]
  - CARDIO-RESPIRATORY ARREST [None]
  - DEATH [None]
  - MALAISE [None]
